FAERS Safety Report 6368716-8 (Version None)
Quarter: 2009Q3

REPORT INFORMATION
  Report Type: 
  Country: None (occurrence: None)
  Receive Date: 20090917
  Receipt Date: 20090917
  Transmission Date: 20100115
  Serious: Yes (Life-Threatening)
  Sender: FDA-Public Use
  Company Number: None

PATIENT
  Age: 16 Year
  Sex: Male
  Weight: 51 kg

DRUGS (2)
  1. GAMUNEX [Suspect]
     Indication: HYPOGAMMAGLOBULINAEMIA
     Dosage: 20 GRAMS 1ST DOSE IV
     Route: 042
     Dates: start: 20090908
  2. GAMUNEX [Suspect]
     Indication: LEUKAEMIA
     Dosage: 20 GRAMS 1ST DOSE IV
     Route: 042
     Dates: start: 20090908

REACTIONS (9)
  - ANAPHYLACTIC REACTION [None]
  - BLOOD PRESSURE DECREASED [None]
  - BODY TEMPERATURE INCREASED [None]
  - CARDIAC ARREST [None]
  - DYSPNOEA [None]
  - HEART RATE DECREASED [None]
  - HYPOXIA [None]
  - PULMONARY OEDEMA [None]
  - VENTRICULAR TACHYCARDIA [None]
